FAERS Safety Report 7639525-4 (Version None)
Quarter: 2011Q3

REPORT INFORMATION
  Report Type: 
  Country: None (occurrence: None)
  Receive Date: 20110727
  Receipt Date: 20110719
  Transmission Date: 20111222
  Serious: Yes (Hospitalization)
  Sender: FDA-Public Use
  Company Number: JP-GLAXOSMITHKLINE-B0715578A

PATIENT
  Sex: Male
  Weight: 65 kg

DRUGS (18)
  1. TACROLIMUS [Concomitant]
     Indication: IMMUNOSUPPRESSION
     Dosage: 2MG PER DAY
     Route: 042
     Dates: start: 20091028, end: 20091204
  2. URSO 250 [Concomitant]
     Dosage: 600MG PER DAY
     Route: 048
     Dates: start: 20091024, end: 20100129
  3. MAGMITT [Concomitant]
     Dosage: 1980MG PER DAY
     Route: 048
     Dates: start: 20091024, end: 20100118
  4. PREDNISOLONE [Concomitant]
     Dosage: 30MG PER DAY
     Route: 042
     Dates: start: 20091023, end: 20091110
  5. ALKERAN [Suspect]
     Indication: CORD BLOOD TRANSPLANT THERAPY
     Dosage: 68MGM2 PER DAY
     Route: 042
     Dates: start: 20091026, end: 20091027
  6. PAZUCROSS [Suspect]
     Indication: PRODUCT USED FOR UNKNOWN INDICATION
     Dosage: 500MG PER DAY
     Route: 042
     Dates: start: 20091112, end: 20091120
  7. PURSENNID [Concomitant]
     Dosage: 12MG PER DAY
     Route: 048
     Dates: start: 20091017, end: 20091113
  8. TACROLIMUS [Concomitant]
     Dosage: .4MG PER DAY
     Route: 048
     Dates: start: 20091204, end: 20091206
  9. ZOSYN [Concomitant]
     Dosage: 4.5G PER DAY
     Route: 042
     Dates: start: 20091020, end: 20091109
  10. RAMELTEON [Concomitant]
     Dosage: .3MG PER DAY
     Route: 042
     Dates: start: 20091021, end: 20091028
  11. ZOVIRAX [Concomitant]
     Dosage: 1000MG PER DAY
     Route: 048
     Dates: start: 20091022, end: 20091109
  12. FUROSEMIDE [Concomitant]
     Route: 042
     Dates: start: 20091014, end: 20091205
  13. FLUDARA [Suspect]
     Indication: CORD BLOOD TRANSPLANT THERAPY
     Dosage: 42MG PER DAY
     Route: 042
     Dates: start: 20091021, end: 20091025
  14. VFEND [Concomitant]
     Dosage: 400MG PER DAY
     Route: 042
     Dates: start: 20091017, end: 20091202
  15. LANSOPRAZOLE [Concomitant]
     Dosage: 15MG PER DAY
     Route: 048
     Dates: start: 20091024, end: 20100108
  16. ZOLPIDEM [Concomitant]
     Dosage: 5MG PER DAY
     Route: 048
     Dates: start: 20091017, end: 20091204
  17. POLYMYXIN B SULFATE [Concomitant]
     Dosage: 1IU6 PER DAY
     Route: 048
     Dates: start: 20091024, end: 20091120
  18. TEICOPLANIN [Concomitant]
     Dosage: 400MG PER DAY
     Route: 042
     Dates: start: 20091008, end: 20091109

REACTIONS (2)
  - PSEUDOMEMBRANOUS COLITIS [None]
  - FEBRILE NEUTROPENIA [None]
